FAERS Safety Report 16538045 (Version 1)
Quarter: 2019Q3

REPORT INFORMATION
  Report Type: Spontaneous
  Country: US (occurrence: US)
  Receive Date: 20190523
  Receipt Date: 20190523
  Transmission Date: 20191004
  Serious: Yes (Hospitalization)
  Sender: FDA-Public Use
  Company Number: None

PATIENT
  Age: 74 Year
  Sex: Male
  Weight: 81.74 kg

DRUGS (16)
  1. ENZALUTAMIDE [Suspect]
     Active Substance: ENZALUTAMIDE
     Indication: PROSTATE CANCER
     Route: 048
     Dates: start: 20160726
  2. ALLOPURINAL [Concomitant]
     Active Substance: ALLOPURINOL
  3. METOLAZONE. [Concomitant]
     Active Substance: METOLAZONE
  4. CICLOPIROX TOPICAL [Concomitant]
  5. DENOSUMAB [Concomitant]
     Active Substance: DENOSUMAB
  6. FUROSEMIDE. [Concomitant]
     Active Substance: FUROSEMIDE
  7. COQ10 [Concomitant]
     Active Substance: UBIDECARENONE
  8. SPIRONOLACTONE. [Concomitant]
     Active Substance: SPIRONOLACTONE
  9. TORSEMIDE. [Concomitant]
     Active Substance: TORSEMIDE
  10. ZENPEP [Concomitant]
     Active Substance: PANCRELIPASE AMYLASE\PANCRELIPASE LIPASE\PANCRELIPASE PROTEASE
  11. VITAMIN D [Concomitant]
     Active Substance: VITAMIN D NOS
  12. FOLIC ACID. [Concomitant]
     Active Substance: FOLIC ACID
  13. INSULIN [Concomitant]
     Active Substance: INSULIN NOS
  14. LUPRON [Concomitant]
     Active Substance: LEUPROLIDE ACETATE
  15. OMPERAZOLE [Concomitant]
     Active Substance: OMEPRAZOLE
  16. CARVEDILOL. [Concomitant]
     Active Substance: CARVEDILOL

REACTIONS (2)
  - Cardiac failure [None]
  - Urosepsis [None]

NARRATIVE: CASE EVENT DATE: 20190518
